FAERS Safety Report 10641498 (Version 2)
Quarter: 2015Q1

REPORT INFORMATION
  Report Type: Spontaneous
  Country: DK (occurrence: IT)
  Receive Date: 20141209
  Receipt Date: 20150302
  Transmission Date: 20150720
  Serious: Yes (Hospitalization)
  Sender: FDA-Public Use
  Company Number: IT-FRI-1000072956

PATIENT
  Age: 23 Year
  Sex: Female

DRUGS (3)
  1. ESCITALOPRAM [Suspect]
     Active Substance: ESCITALOPRAM OXALATE
     Indication: DRUG ABUSE
     Dosage: OVERDOSE: 140 MG DAILY
     Route: 048
     Dates: start: 20141128, end: 20141128
  2. MIRTAZAPINE. [Suspect]
     Active Substance: MIRTAZAPINE
     Indication: DRUG ABUSE
     Dosage: 600 MG DAILY
     Route: 048
     Dates: start: 20141128, end: 20141128
  3. PERIACTIN [Suspect]
     Active Substance: CYPROHEPTADINE HYDROCHLORIDE
     Indication: DRUG ABUSE
     Dosage: 40 MG DAILY
     Route: 048
     Dates: start: 20141128, end: 20141128

REACTIONS (5)
  - Drug abuse [Recovered/Resolved]
  - Intentional overdose [None]
  - Sopor [Recovered/Resolved]
  - Bradykinesia [Recovered/Resolved]
  - Overdose [Unknown]

NARRATIVE: CASE EVENT DATE: 20141128
